FAERS Safety Report 6592930-X (Version None)
Quarter: 2010Q1

REPORT INFORMATION
  Report Type: 
  Country: None (occurrence: None)
  Receive Date: 20100218
  Receipt Date: 20100218
  Transmission Date: 20100710
  Serious: No
  Sender: FDA-Public Use
  Company Number: None

PATIENT
  Age: 15 Year
  Sex: Male
  Weight: 44.2257 kg

DRUGS (3)
  1. ADDERALL 30 [Suspect]
     Dosage: 40 MG DAY PO, 18
     Route: 048
  2. DIVALPROEX SODIUM [Suspect]
     Dosage: 750MG DAY PO
     Route: 048
  3. QUETIAPINE [Concomitant]

REACTIONS (1)
  - WEIGHT DECREASED [None]
